FAERS Safety Report 6184682-2 (Version None)
Quarter: 2009Q2

REPORT INFORMATION
  Report Type: 
  Country: None (occurrence: None)
  Receive Date: 20090508
  Receipt Date: 20090428
  Transmission Date: 20091009
  Serious: Yes (Other)
  Sender: FDA-Public Use
  Company Number: GB-PFIZER INC-2009204356

PATIENT
  Age: 62 Year

DRUGS (1)
  1. CHAMPIX [Suspect]
     Indication: SMOKING CESSATION THERAPY
     Dosage: 1 MG, 2X/DAY
     Route: 048
     Dates: start: 20081029, end: 20090207

REACTIONS (4)
  - ACUTE STRESS DISORDER [None]
  - DEPRESSION [None]
  - IRRITABILITY [None]
  - PANIC ATTACK [None]
